FAERS Safety Report 10044841 (Version 1)
Quarter: 2014Q1

REPORT INFORMATION
  Report Type: Spontaneous
  Country: US (occurrence: None)
  Receive Date: 20140306
  Receipt Date: 20140306
  Transmission Date: 20141002
  Serious: Yes (Hospitalization)
  Sender: FDA-Public Use
  Company Number: 163-21880-13053356

PATIENT
  Age: 82 Year
  Sex: Female

DRUGS (2)
  1. REVLIMID (LENALIDOMIDE) (5 MILLIGRAM, CAPSULES) [Suspect]
     Indication: LYMPHATIC DISORDER
     Dosage: 4/24/2013 - ON HOLD; 1 IN 1 D
     Route: 048
     Dates: start: 20130424
  2. ENOXAPARIN (ENOXAPARIN) [Concomitant]

REACTIONS (4)
  - Abasia [None]
  - Rash [None]
  - Renal failure [None]
  - Decreased appetite [None]
